FAERS Safety Report 5246073-8 (Version None)
Quarter: 2007Q1

REPORT INFORMATION
  Report Type: 
  Country: None (occurrence: None)
  Receive Date: 20061201
  Receipt Date: 20060808
  Transmission Date: 20070707
  Serious: No
  Sender: FDA-Public Use
  Company Number: 2006PV019088

PATIENT
  Age: 33 Year
  Sex: Female
  Weight: 130.6359 kg

DRUGS (5)
  1. BYETTA [Suspect]
     Indication: DIABETES MELLITUS NON-INSULIN-DEPENDENT
     Dosage: 10 MCG;BID;SC
     Route: 058
     Dates: start: 20060708
  2. METFORMIN [Concomitant]
  3. GLYBURIDE [Concomitant]
  4. DIOVAN [Concomitant]
  5. XENICAL [Concomitant]

REACTIONS (1)
  - WEIGHT DECREASED [None]
